FAERS Safety Report 12076473 (Version 1)
Quarter: 2016Q1

REPORT INFORMATION
  Report Type: Spontaneous
  Country: DK (occurrence: DK)
  Receive Date: 20160215
  Receipt Date: 20160215
  Transmission Date: 20160526
  Serious: Yes (Hospitalization, Other)
  Sender: FDA-Public Use
  Company Number: DK-CIPLA LTD.-2016DK01006

PATIENT

DRUGS (2)
  1. SERTRALINE [Suspect]
     Active Substance: SERTRALINE HYDROCHLORIDE
     Indication: ANTIDEPRESSANT THERAPY
     Dosage: UNK, QD
     Route: 065
     Dates: start: 19940831
  2. SERTRALINE [Suspect]
     Active Substance: SERTRALINE HYDROCHLORIDE
     Dosage: 200 MG, QD
     Route: 065
     Dates: end: 19941005

REACTIONS (3)
  - Homicidal ideation [Recovered/Resolved]
  - Drug dose omission [Unknown]
  - Aggression [Recovered/Resolved]
